FAERS Safety Report 8345421-X (Version None)
Quarter: 2012Q2

REPORT INFORMATION
  Report Type: 
  Country: None (occurrence: None)
  Receive Date: 20120504
  Receipt Date: 20120419
  Transmission Date: 20120825
  Serious: Yes (Other)
  Sender: FDA-Public Use
  Company Number: EU-2012-10127

PATIENT
  Age: 74 Year
  Sex: Male

DRUGS (11)
  1. TORSEMIDE [Concomitant]
  2. OMEPRAZOLE [Suspect]
     Dosage: 20 MG MILLIGRAM(S), DAILY DOSE, ORAL
     Route: 048
     Dates: start: 20080929
  3. LEXATIN (BROMAZEPAM) [Concomitant]
  4. ATORVASTATIN CALCIUM [Concomitant]
  5. CAFINITRINA (CAFFEINE CITRATE, GLYCERYL TRINITRATE, PHENOBARBITAL) [Concomitant]
  6. NITRADISC (GLYCERYL TRINITRATE) [Concomitant]
  7. VENTOLIN [Concomitant]
  8. CILOSTAZOL [Suspect]
     Indication: INTERMITTENT CLAUDICATION
     Dosage: 50 MG MILLIGRAM(S), DAILY DOSE, ORAL
     Route: 048
     Dates: start: 20110525, end: 20110526
  9. TARKA 180/2 (TRANDOLAPRIL, VERAPAMIL HYDROCHLORIDE) [Concomitant]
  10. ASPIRIN [Concomitant]
  11. XALATAN [Concomitant]

REACTIONS (2)
  - DRUG INTERACTION [None]
  - TACHYCARDIA [None]
